FAERS Safety Report 13911904 (Version 1)
Quarter: 2017Q3

REPORT INFORMATION
  Report Type: Spontaneous
  Country: US (occurrence: US)
  Receive Date: 20170827
  Receipt Date: 20170827
  Transmission Date: 20171127
  Serious: No
  Sender: FDA-Public Use
  Company Number: None

PATIENT
  Age: 46 Year
  Sex: Female
  Weight: 65.25 kg

DRUGS (2)
  1. RHOFADE [Suspect]
     Active Substance: OXYMETAZOLINE HYDROCHLORIDE
     Indication: ROSACEA
     Route: 061
     Dates: start: 20170612, end: 20170619
  2. FINACEA [Concomitant]
     Active Substance: AZELAIC ACID

REACTIONS (3)
  - Application site vesicles [None]
  - Rosacea [None]
  - Application site erythema [None]

NARRATIVE: CASE EVENT DATE: 20170612
